FAERS Safety Report 16218401 (Version 1)
Quarter: 2019Q2

REPORT INFORMATION
  Report Type: Spontaneous
  Country: US (occurrence: US)
  Receive Date: 20190419
  Receipt Date: 20190419
  Transmission Date: 20190711
  Serious: No
  Sender: FDA-Public Use
  Company Number: US-PFIZER INC-2019164407

PATIENT
  Age: 61 Year
  Sex: Female
  Weight: 67 kg

DRUGS (3)
  1. METHOTREXATE. [Concomitant]
     Active Substance: METHOTREXATE
     Indication: RHEUMATOID ARTHRITIS
     Dosage: 0.8 ML, WEEKLY (SHE TAKES 0.8 ML PER DAY. TAKES ONE SHOT PER WEEK.)
     Dates: start: 2012
  2. GABAPENTIN. [Suspect]
     Active Substance: GABAPENTIN
     Indication: FIBROMYALGIA
     Dosage: UNK
  3. FOLIC ACID. [Concomitant]
     Active Substance: FOLIC ACID
     Dosage: 1 MG, DAILY (1 MG PER DAY)
     Route: 048
     Dates: start: 2012

REACTIONS (1)
  - Drug ineffective for unapproved indication [Unknown]
